FAERS Safety Report 12653315 (Version 3)
Quarter: 2016Q3

REPORT INFORMATION
  Report Type: Report from Study
  Country: US (occurrence: US)
  Receive Date: 20160815
  Receipt Date: 20160831
  Transmission Date: 20161109
  Serious: No
  Sender: FDA-Public Use
  Company Number: US-GILEAD-2016-0227887

PATIENT
  Age: 64 Year
  Sex: Male

DRUGS (4)
  1. LEDIPASVIR/SOFOSBUVIR [Suspect]
     Active Substance: LEDIPASVIR\SOFOSBUVIR
     Indication: CHRONIC HEPATITIS C
  2. GABAPENTIN. [Concomitant]
     Active Substance: GABAPENTIN
     Indication: PRODUCT USED FOR UNKNOWN INDICATION
  3. LEDIPASVIR/SOFOSBUVIR [Suspect]
     Active Substance: LEDIPASVIR\SOFOSBUVIR
     Indication: LIVER TRANSPLANT
     Dosage: 1 DF, QD
     Route: 048
     Dates: start: 20160531
  4. RIBAVIRIN. [Concomitant]
     Active Substance: RIBAVIRIN
     Indication: CHRONIC HEPATITIS C
     Dosage: 200 MG, UNK
     Route: 048
     Dates: start: 20160531

REACTIONS (10)
  - Epistaxis [Recovered/Resolved]
  - Dizziness [Unknown]
  - Influenza [Unknown]
  - Malaise [Not Recovered/Not Resolved]
  - Sluggishness [Unknown]
  - Headache [Unknown]
  - Migraine [Unknown]
  - Asthenia [Unknown]
  - Nasopharyngitis [Unknown]
  - Fatigue [Unknown]
